FAERS Safety Report 7906176-3 (Version None)
Quarter: 2011Q4

REPORT INFORMATION
  Report Type: 
  Country: None (occurrence: None)
  Receive Date: 20111109
  Receipt Date: 20111109
  Transmission Date: 20120403
  Serious: Yes (Disabling, Other)
  Sender: FDA-Public Use
  Company Number: None

PATIENT
  Age: 73 Year
  Sex: Female
  Weight: 90.7194 kg

DRUGS (1)
  1. AVELOX [Suspect]
     Indication: INFECTION
     Dosage: IV DRIP 60MG 1 PILL DAY
     Dates: start: 20110812

REACTIONS (1)
  - UNEVALUABLE EVENT [None]
